FAERS Safety Report 20506929 (Version 1)
Quarter: 2022Q1

REPORT INFORMATION
  Report Type: Spontaneous
  Country: US (occurrence: US)
  Receive Date: 20220223
  Receipt Date: 20220223
  Transmission Date: 20220423
  Serious: No
  Sender: FDA-Public Use
  Company Number: US-ORGANON-O2202USA001801

PATIENT
  Sex: Female

DRUGS (1)
  1. COZAAR [Suspect]
     Active Substance: LOSARTAN POTASSIUM
     Dosage: UNK
     Route: 048

REACTIONS (3)
  - Product packaging quantity issue [Unknown]
  - Product dispensing error [Unknown]
  - No adverse event [Unknown]

NARRATIVE: CASE EVENT DATE: 20220204
